FAERS Safety Report 8823403 (Version 4)
Quarter: 2015Q2

REPORT INFORMATION
  Report Type: Report from Study
  Country: US (occurrence: US)
  Receive Date: 20121003
  Receipt Date: 20150615
  Transmission Date: 20150821
  Serious: Yes (Hospitalization)
  Sender: FDA-Public Use
  Company Number: US-TEVA-362106USA

PATIENT
  Age: 56 Year
  Sex: Female
  Weight: 91.98 kg

DRUGS (18)
  1. DOXORUBICIN [Suspect]
     Active Substance: DOXORUBICIN
     Indication: SARCOMA
     Dosage: TOTAL DOSE 155MG, BOLUS, CYCLE 2
     Route: 065
     Dates: start: 20120725, end: 20120725
  2. FOSAPREPITANT [Concomitant]
     Active Substance: FOSAPREPITANT
     Dates: start: 20120705
  3. PALONOSETRON [Concomitant]
     Active Substance: PALONOSETRON
     Dates: start: 20120705
  4. PEGFILGRASTIM [Concomitant]
     Active Substance: PEGFILGRASTIM
     Dates: start: 20120711, end: 20120801
  5. DOXORUBICIN [Suspect]
     Active Substance: DOXORUBICIN
     Dosage: CYCLIC
     Route: 065
     Dates: start: 20120705, end: 20120705
  6. SENNOSIDE A+B [Concomitant]
     Active Substance: SENNOSIDES A AND B
     Dates: start: 2010
  7. DEXAMETHASONE. [Concomitant]
     Active Substance: DEXAMETHASONE
     Dates: start: 20120705
  8. ONDANSETRON [Concomitant]
     Active Substance: ONDANSETRON
     Dates: start: 20120711
  9. OXYGEN. [Concomitant]
     Active Substance: OXYGEN
     Dates: start: 20120619
  10. LIDOCAINE W/PRILOCAINE [Concomitant]
     Dates: start: 20120705
  11. ALEVE [Concomitant]
     Active Substance: NAPROXEN SODIUM
     Dates: start: 20120705
  12. ASPIRIN. [Concomitant]
     Active Substance: ASPIRIN
     Dates: start: 20120616
  13. BENADRYL [Concomitant]
     Active Substance: DIPHENHYDRAMINE HYDROCHLORIDE
     Dates: start: 2010
  14. PROCHLORPERAZINE MALEATE. [Concomitant]
     Active Substance: PROCHLORPERAZINE MALEATE
     Dates: start: 20120705
  15. AUGMENTIN [Concomitant]
     Active Substance: AMOXICILLIN\CLAVULANATE POTASSIUM
     Dates: start: 20120803, end: 20120812
  16. TH-302 [Suspect]
     Active Substance: EVOFOSFAMIDE
     Indication: SARCOMA
     Route: 042
     Dates: start: 20120801, end: 20120801
  17. TYLENOL [Concomitant]
     Active Substance: ACETAMINOPHEN
     Dates: start: 1992
  18. LORAZEPAM. [Concomitant]
     Active Substance: LORAZEPAM
     Dates: start: 20120705

REACTIONS (2)
  - Pneumonia [Recovered/Resolved]
  - Anaemia [Recovered/Resolved]

NARRATIVE: CASE EVENT DATE: 20120811
